FAERS Safety Report 7339099-1 (Version None)
Quarter: 2011Q1

REPORT INFORMATION
  Report Type: 
  Country: None (occurrence: None)
  Receive Date: 20110308
  Receipt Date: 20110221
  Transmission Date: 20110831
  Serious: Yes (Other)
  Sender: FDA-Public Use
  Company Number: KR-BAYER-2011-016619

PATIENT
  Sex: Female
  Weight: 54 kg

DRUGS (44)
  1. SYNTHROID [Concomitant]
     Indication: THYROID HORMONE REPLACEMENT THERAPY
     Dosage: 0.2 MG, QD
     Route: 048
     Dates: start: 20081013
  2. MAGNESIUM OXIDE [Concomitant]
     Indication: CONSTIPATION
     Dosage: 500 MG, QD
     Route: 048
     Dates: start: 20110131, end: 20110201
  3. GASMOTIN [Concomitant]
     Dosage: 20 MG, QD
     Route: 048
     Dates: start: 20110205, end: 20110205
  4. DUPHALAC [Concomitant]
     Indication: CONSTIPATION
     Dosage: Q2.68 ML, QD
     Route: 048
     Dates: start: 20110205, end: 20110205
  5. ACETAMINOPHEN [Concomitant]
     Dosage: 900 MG, QD
     Dates: start: 20110125, end: 20110131
  6. CODENAL [Concomitant]
     Indication: RHINITIS ALLERGIC
     Dosage: 180 ML, QD
     Route: 048
     Dates: start: 20110129, end: 20110129
  7. MAGNESIUM OXIDE [Concomitant]
     Dosage: 1000 MG, QD
     Route: 048
     Dates: start: 20110202, end: 20110203
  8. DUPHALAC [Concomitant]
     Dosage: 32.68 ML, QD
     Route: 048
     Dates: start: 20110207, end: 20110208
  9. TRIAMCINOLONE ACETONIDE [Concomitant]
     Indication: MUCOSAL INFLAMMATION
     Dosage: 10 G, QD
     Route: 061
     Dates: start: 20110220
  10. OSSOPAN [Concomitant]
     Dosage: 1660 MG, QD
     Dates: start: 20081013
  11. MAGNESIUM OXIDE [Concomitant]
     Dosage: 1000 MG, QD
     Route: 048
     Dates: start: 20110205, end: 20110207
  12. GASMOTIN [Concomitant]
     Indication: DYSPEPSIA
     Dosage: 5 MG, QD
     Route: 048
     Dates: start: 20110201, end: 20110203
  13. RINO EBASTEL [Concomitant]
     Indication: RHINITIS ALLERGIC
     Dosage: 130 MG, QD
     Route: 055
     Dates: start: 20110129, end: 20110130
  14. MAGNESIUM OXIDE [Concomitant]
     Dosage: 500 MG, QD
     Route: 048
     Dates: start: 20110104, end: 20110104
  15. METOCLOPRAMIDE HCL [Concomitant]
     Indication: DYSPEPSIA
     Dosage: 10 ML, QD
     Route: 042
     Dates: start: 20110201, end: 20110202
  16. GASMOTIN [Concomitant]
     Dosage: 15 MG, QD
     Route: 048
     Dates: start: 20110206, end: 20110208
  17. UNCODEABLE ^UNKNOWN MANUFACTURER^ [Concomitant]
     Indication: MEDICAL DIET
     Dosage: 1920 ML, QD
     Route: 048
     Dates: start: 20110203, end: 20110204
  18. SODIUM CHLORIDE [Concomitant]
     Dosage: 1000 ML, QD
     Route: 042
     Dates: start: 20110202
  19. BACTROBAN [Concomitant]
     Indication: PROPHYLAXIS
     Dosage: 10 G, QD
     Route: 061
     Dates: start: 20110220
  20. UNCODEABLE ^UNKNOWN MANUFACTURER^ [Concomitant]
     Dosage: 40 G, QD
     Dates: start: 20100718, end: 20100728
  21. BISACODYL [Concomitant]
     Dosage: 10 MG, QD
     Dates: start: 20100810, end: 20100823
  22. PLACEBO (14295) [Suspect]
     Dosage: 800MG
     Route: 048
     Dates: start: 20100810
  23. ALLEGRA [Concomitant]
     Indication: RHINITIS ALLERGIC
     Dosage: 120 MG, QD
     Route: 048
     Dates: start: 20100824
  24. TANTUM [Concomitant]
     Indication: MUCOSAL INFLAMMATION
     Dosage: 100 ML, QD (SOLUTION)
     Route: 048
     Dates: start: 20100824
  25. MAGNESIUM OXIDE [Concomitant]
     Dosage: 750 MG, QD
     Route: 048
     Dates: start: 20110220
  26. UNCODEABLE ^UNKNOWN MANUFACTURER^ [Concomitant]
     Indication: CYSTITIS
     Dosage: 5 MG, QD
     Route: 042
     Dates: start: 20110209, end: 20110209
  27. PLACEBO (14295) [Suspect]
     Dosage: 800 MG, QD
     Route: 048
     Dates: end: 20100727
  28. UNCODEABLE ^UNKNOWN MANUFACTURER^ [Concomitant]
     Indication: DYSPEPSIA
     Dosage: 100 ML, QD
     Route: 048
     Dates: start: 20110127
  29. MAGNESIUM OXIDE [Concomitant]
     Dosage: 2250 MG, QD
     Route: 048
     Dates: start: 20110209, end: 20110210
  30. MAGNESIUM OXIDE [Concomitant]
     Dosage: 1000 MG, QD
     Route: 048
     Dates: start: 20110211, end: 20110211
  31. SODIUM CHLORIDE [Concomitant]
     Indication: NUTRITIONAL SUPPORT
     Dosage: 500 ML, QD
     Route: 042
     Dates: start: 20110208, end: 20110208
  32. ALFACALCIDOL [Concomitant]
     Dosage: 1 ?G, QD
     Dates: start: 20081013
  33. SORAFENIB (RAF KINASE INHIBITOR) [Suspect]
     Indication: THYROID CANCER METASTATIC
     Dosage: 800MG
     Route: 048
     Dates: start: 20100810
  34. BIOFLOR [Concomitant]
     Indication: CONSTIPATION
     Dosage: 847.5 MG, QD
     Route: 048
     Dates: start: 20100824, end: 20110202
  35. BIOFLOR [Concomitant]
     Indication: DYSPEPSIA
     Dosage: 847.5 MG, QD
     Route: 048
     Dates: start: 20110203, end: 20110204
  36. MAGNESIUM OXIDE [Concomitant]
     Dosage: 1500 MG, QD
     Route: 048
     Dates: start: 20110208, end: 20110208
  37. BEARSE [Concomitant]
     Indication: DYSPEPSIA
     Dosage: 243.6 MG, QD
     Route: 048
     Dates: start: 20110203, end: 20110204
  38. DUPHALAC [Concomitant]
     Dosage: 16.34 ML, QD
     Route: 048
     Dates: start: 20110209, end: 20110219
  39. SEPTRIN [Concomitant]
     Indication: CYSTITIS
     Dosage: 1920 MG, QD
     Route: 048
     Dates: start: 20110207, end: 20110213
  40. MADECASSOL [Concomitant]
     Indication: DECUBITUS ULCER
     Dosage: 5 G, QD
     Route: 061
     Dates: start: 20110220
  41. UNCODEABLE ^UNKNOWN MANUFACTURER^ [Concomitant]
     Dosage: 12 G, QD
     Dates: start: 20100810, end: 20100823
  42. DUPHALAC [Concomitant]
     Dosage: 16.34 ML, QD
     Route: 048
     Dates: start: 20110206, end: 20110206
  43. SODIUM CHLORIDE [Concomitant]
     Dosage: 1500 ML, QD
     Route: 042
     Dates: start: 20110220, end: 20110220
  44. SODIUM CHLORIDE [Concomitant]
     Dosage: 1500 ML, QD
     Dates: start: 20100720, end: 20100720

REACTIONS (1)
  - RECTAL ULCER [None]
